FAERS Safety Report 14433133 (Version 1)
Quarter: 2018Q1

REPORT INFORMATION
  Report Type: Spontaneous
  Country: US (occurrence: US)
  Receive Date: 20180124
  Receipt Date: 20180124
  Transmission Date: 20180509
  Serious: No
  Sender: FDA-Public Use
  Company Number: US-BAYER-2018-009887

PATIENT
  Age: 41 Year
  Sex: Male
  Weight: 126.98 kg

DRUGS (4)
  1. CORTISONE [Concomitant]
     Active Substance: CORTISONE\HYDROCORTISONE
     Dosage: UNK
  2. LOTRIMIN ULTRA ANTIFUNGAL [Suspect]
     Active Substance: BUTENAFINE HYDROCHLORIDE
     Indication: THERAPEUTIC SKIN CARE TOPICAL
     Dosage: 2 DF, BID
     Route: 061
  3. LOTRIMIN ULTRA ANTIFUNGAL [Suspect]
     Active Substance: BUTENAFINE HYDROCHLORIDE
     Indication: DRY SKIN
  4. LOTRIMIN ULTRA ANTIFUNGAL [Suspect]
     Active Substance: BUTENAFINE HYDROCHLORIDE
     Indication: SKIN FISSURES

REACTIONS (4)
  - Therapeutic response unexpected [Unknown]
  - Wrong technique in product usage process [Unknown]
  - Product prescribing issue [Unknown]
  - Inappropriate schedule of drug administration [Unknown]
